FAERS Safety Report 10003627 (Version 2)
Quarter: 2014Q1

REPORT INFORMATION
  Report Type: Spontaneous
  Country: US (occurrence: US)
  Receive Date: 20140312
  Receipt Date: 20140312
  Transmission Date: 20141002
  Serious: Yes (Other)
  Sender: FDA-Public Use
  Company Number: US-GE HEALTHCARE MEDICAL DIAGNOSTICS-OSCN-PR-0806S-0355

PATIENT
  Age: 38 Year
  Sex: Female

DRUGS (2)
  1. OMNISCAN [Suspect]
     Indication: RENAL FAILURE CHRONIC
     Route: 042
     Dates: start: 20020215, end: 20020215
  2. OMNISCAN [Suspect]
     Indication: HEPATIC MASS
     Route: 042
     Dates: start: 20040419, end: 20040419

REACTIONS (1)
  - Nephrogenic systemic fibrosis [Not Recovered/Not Resolved]
